FAERS Safety Report 19682709 (Version 2)
Quarter: 2023Q1

REPORT INFORMATION
  Report Type: Report from Study
  Country: FR (occurrence: FR)
  Receive Date: 20210810
  Receipt Date: 20230215
  Transmission Date: 20230418
  Serious: Yes (Death, Life-Threatening, Other)
  Sender: FDA-Public Use
  Company Number: FR-TAKEDA-FR201820369

PATIENT
  Age: 56 Year
  Sex: Male
  Weight: 69.5 kg

DRUGS (8)
  1. TEDUGLUTIDE [Suspect]
     Active Substance: TEDUGLUTIDE
     Indication: Short-bowel syndrome
     Dosage: 3.550 MILLIGRAM, QD
     Route: 042
     Dates: start: 20170201, end: 201805
  2. TEDUGLUTIDE [Suspect]
     Active Substance: TEDUGLUTIDE
     Indication: Short-bowel syndrome
     Dosage: 3.550 MILLIGRAM, QD
     Route: 042
     Dates: start: 20170201, end: 201805
  3. TEDUGLUTIDE [Suspect]
     Active Substance: TEDUGLUTIDE
     Indication: Short-bowel syndrome
     Dosage: 3.550 MILLIGRAM, QD
     Route: 042
     Dates: start: 20170201, end: 201805
  4. TEDUGLUTIDE [Suspect]
     Active Substance: TEDUGLUTIDE
     Indication: Short-bowel syndrome
     Dosage: 3.550 MILLIGRAM, QD
     Route: 042
     Dates: start: 20170201, end: 201805
  5. IMOVANE [Concomitant]
     Active Substance: ZOPICLONE
     Indication: Insomnia
     Dosage: UNK, QD
     Route: 048
     Dates: start: 20170713
  6. DONORMYL [Concomitant]
     Indication: Insomnia
     Dosage: UNK
     Route: 065
     Dates: start: 20170713
  7. DOXYLAMINE SUCCINATE [Concomitant]
     Active Substance: DOXYLAMINE SUCCINATE
  8. ZOPICLONE [Concomitant]
     Active Substance: ZOPICLONE

REACTIONS (1)
  - Completed suicide [Fatal]

NARRATIVE: CASE EVENT DATE: 20180522
